FAERS Safety Report 16542335 (Version 1)
Quarter: 2019Q3

REPORT INFORMATION
  Report Type: Spontaneous
  Country: US (occurrence: US)
  Receive Date: 20190708
  Receipt Date: 20190708
  Transmission Date: 20191004
  Serious: No
  Sender: FDA-Public Use
  Company Number: US-ASTRAZENECA-2019SE87599

PATIENT
  Age: 26480 Day
  Sex: Female
  Weight: 59 kg

DRUGS (6)
  1. BYDUREON [Suspect]
     Active Substance: EXENATIDE
     Dosage: ONCE A WEEK
     Route: 058
  2. METFORMIN [Concomitant]
     Active Substance: METFORMIN HYDROCHLORIDE
     Indication: DIABETES MELLITUS
     Route: 048
  3. SYNTHROID [Concomitant]
     Active Substance: LEVOTHYROXINE SODIUM
     Indication: THYROID DISORDER
     Route: 048
  4. GLIPIZIDE. [Concomitant]
     Active Substance: GLIPIZIDE
  5. BYDUREON BCISE [Suspect]
     Active Substance: EXENATIDE
     Route: 058
  6. GENERIC EVISTA [Concomitant]
     Indication: OSTEOPENIA
     Route: 048

REACTIONS (7)
  - Injection site pain [Recovered/Resolved]
  - Needle issue [Unknown]
  - Blood glucose fluctuation [Not Recovered/Not Resolved]
  - Intentional product misuse [Unknown]
  - Incorrect dose administered by device [Unknown]
  - Device malfunction [Unknown]
  - Weight decreased [Unknown]

NARRATIVE: CASE EVENT DATE: 20190611
